FAERS Safety Report 14251459 (Version 2)
Quarter: 2018Q1

REPORT INFORMATION
  Report Type: Report from Study
  Country: US (occurrence: US)
  Receive Date: 20171205
  Receipt Date: 20180102
  Transmission Date: 20180508
  Serious: Yes (Hospitalization)
  Sender: FDA-Public Use
  Company Number: US-ACTELION-A-US2017-163456

PATIENT
  Age: 64 Year
  Sex: Male

DRUGS (18)
  1. METOPROLOL. [Concomitant]
     Active Substance: METOPROLOL
  2. HUMALOG [Concomitant]
     Active Substance: INSULIN LISPRO
  3. AMITRIPTYLINE [Concomitant]
     Active Substance: AMITRIPTYLINE
  4. ELAVIL [Concomitant]
     Active Substance: AMITRIPTYLINE HYDROCHLORIDE
  5. FLOMAX [Concomitant]
     Active Substance: TAMSULOSIN HYDROCHLORIDE
  6. ALLOPURINOL. [Concomitant]
     Active Substance: ALLOPURINOL
  7. NORCO [Concomitant]
     Active Substance: ACETAMINOPHEN\HYDROCODONE BITARTRATE
  8. LIPITOR [Concomitant]
     Active Substance: ATORVASTATIN CALCIUM
  9. TRIAMCINOLONE [Concomitant]
     Active Substance: TRIAMCINOLONE
  10. PERCOCET [Concomitant]
     Active Substance: ACETAMINOPHEN\OXYCODONE HYDROCHLORIDE
  11. OPSUMIT [Suspect]
     Active Substance: MACITENTAN
     Indication: PULMONARY ARTERIAL HYPERTENSION
     Dosage: 10 MG, QD
     Route: 048
     Dates: start: 20170214
  12. BREO ELLIPTA [Concomitant]
     Active Substance: FLUTICASONE FUROATE\VILANTEROL TRIFENATATE
  13. OMEPRAZOLE. [Concomitant]
     Active Substance: OMEPRAZOLE
  14. DULOXETINE. [Concomitant]
     Active Substance: DULOXETINE
  15. TORSEMIDE. [Concomitant]
     Active Substance: TORSEMIDE
  16. SPIRONOLACTONE. [Concomitant]
     Active Substance: SPIRONOLACTONE
  17. GABAPENTIN. [Concomitant]
     Active Substance: GABAPENTIN
  18. LEVOTHYROXINE. [Concomitant]
     Active Substance: LEVOTHYROXINE

REACTIONS (5)
  - Ankle fracture [Not Recovered/Not Resolved]
  - Tibia fracture [Recovered/Resolved]
  - Surgery [Recovered/Resolved]
  - Fall [Recovered/Resolved]
  - Fibula fracture [Recovered/Resolved]

NARRATIVE: CASE EVENT DATE: 20171101
